FAERS Safety Report 22122790 (Version 1)
Quarter: 2023Q1

REPORT INFORMATION
  Report Type: Spontaneous
  Country: CA (occurrence: CA)
  Receive Date: 20230322
  Receipt Date: 20230322
  Transmission Date: 20230418
  Serious: Yes (Other)
  Sender: FDA-Public Use
  Company Number: CA-JNJFOC-20230347433

PATIENT
  Age: 38 Year
  Sex: Female
  Weight: 75 kg

DRUGS (20)
  1. REMICADE [Suspect]
     Active Substance: INFLIXIMAB
     Indication: Colitis ulcerative
     Route: 041
  2. INFLIXIMAB [Suspect]
     Active Substance: INFLIXIMAB
     Indication: Colitis ulcerative
     Route: 042
  3. INFLIXIMAB [Suspect]
     Active Substance: INFLIXIMAB
     Route: 042
  4. INFLIXIMAB [Suspect]
     Active Substance: INFLIXIMAB
     Route: 042
  5. INFLIXIMAB [Suspect]
     Active Substance: INFLIXIMAB
     Route: 042
  6. INFLIXIMAB [Suspect]
     Active Substance: INFLIXIMAB
     Route: 042
  7. BUPROPION [Concomitant]
     Active Substance: BUPROPION
  8. CALCIUM CARBONATE [Concomitant]
     Active Substance: CALCIUM CARBONATE
  9. CELECOXIB [Concomitant]
     Active Substance: CELECOXIB
  10. ERGOCALCIFEROL [Concomitant]
     Active Substance: ERGOCALCIFEROL
  11. GABAPENTIN [Concomitant]
     Active Substance: GABAPENTIN
  12. HYDROCORTISONE [Concomitant]
     Active Substance: HYDROCORTISONE
     Indication: Premedication
     Route: 042
  13. LORAZEPAM [Concomitant]
     Active Substance: LORAZEPAM
  14. ONDANSETRON [Concomitant]
     Active Substance: ONDANSETRON
  15. PANTOPRAZOLE [Concomitant]
     Active Substance: PANTOPRAZOLE
  16. PREDNISONE [Concomitant]
     Active Substance: PREDNISONE
  17. QUETIAPINE [Concomitant]
     Active Substance: QUETIAPINE
  18. SUCRALFATE [Concomitant]
     Active Substance: SUCRALFATE
  19. DULOXETINE [Concomitant]
     Active Substance: DULOXETINE
  20. TYLENOL [Concomitant]
     Active Substance: ACETAMINOPHEN
     Indication: Premedication
     Route: 048

REACTIONS (7)
  - Oropharyngeal pain [Not Recovered/Not Resolved]
  - Weight increased [Not Recovered/Not Resolved]
  - Fatigue [Not Recovered/Not Resolved]
  - Headache [Not Recovered/Not Resolved]
  - Pain [Not Recovered/Not Resolved]
  - Condition aggravated [Not Recovered/Not Resolved]
  - Off label use [Not Recovered/Not Resolved]
